FAERS Safety Report 16060528 (Version 1)
Quarter: 2019Q1

REPORT INFORMATION
  Report Type: Spontaneous
  Country: US (occurrence: US)
  Receive Date: 20190211
  Receipt Date: 20190211
  Transmission Date: 20190418
  Serious: No
  Sender: FDA-Public Use
  Company Number: None

PATIENT
  Age: 56 Year
  Sex: Female
  Weight: 109.77 kg

DRUGS (1)
  1. ACTEMRA [Suspect]
     Active Substance: TOCILIZUMAB
     Indication: SENILE OSTEOPOROSIS
     Dosage: INJECT 440MG INTRAVENOUSLY OVER 1 HOUR EVERY 4 WEEKS AS DIRECTED
     Route: 042
     Dates: start: 201809

REACTIONS (2)
  - Therapy cessation [None]
  - Shoulder arthroplasty [None]
